FAERS Safety Report 9713424 (Version 1)
Quarter: 2013Q4

REPORT INFORMATION
  Report Type: Spontaneous
  Country: US (occurrence: US)
  Receive Date: 20131126
  Receipt Date: 20131126
  Transmission Date: 20140711
  Serious: Yes (Other)
  Sender: FDA-Public Use
  Company Number: US-ELI_LILLY_AND_COMPANY-US201311004603

PATIENT
  Sex: Male

DRUGS (1)
  1. HUMATROPE [Suspect]
     Indication: PITUITARY TUMOUR REMOVAL
     Dosage: 300 UG, QD
     Dates: start: 2004

REACTIONS (2)
  - Osteoarthritis [Unknown]
  - Mobility decreased [Unknown]
